FAERS Safety Report 14758493 (Version 1)
Quarter: 2018Q2

REPORT INFORMATION
  Report Type: Spontaneous
  Country: US (occurrence: US)
  Receive Date: 20180413
  Receipt Date: 20180413
  Transmission Date: 20180711
  Serious: No
  Sender: FDA-Public Use
  Company Number: US-NOVOPROD-587662

PATIENT
  Age: 75 Year
  Sex: Female

DRUGS (2)
  1. TRESIBA [Suspect]
     Active Substance: INSULIN DEGLUDEC
     Indication: DIABETES MELLITUS
     Dosage: 10 UNITS
     Route: 058
     Dates: start: 20180125
  2. BYDUREON [Concomitant]
     Active Substance: EXENATIDE
     Indication: DIABETES MELLITUS

REACTIONS (1)
  - Injection site mass [Recovering/Resolving]

NARRATIVE: CASE EVENT DATE: 201801
